FAERS Safety Report 18664252 (Version 1)
Quarter: 2020Q4

REPORT INFORMATION
  Report Type: Spontaneous
  Country: FR (occurrence: FR)
  Receive Date: 20201225
  Receipt Date: 20201225
  Transmission Date: 20210114
  Serious: Yes (Hospitalization, Other)
  Sender: FDA-Public Use
  Company Number: FR-SA-2020SA361575

PATIENT

DRUGS (3)
  1. INNOHEP [Suspect]
     Active Substance: TINZAPARIN SODIUM
     Indication: PERIPHERAL ARTERY OCCLUSION
     Dosage: UNK
     Dates: start: 20201117, end: 20201125
  2. HEPARIN SODIUM. [Suspect]
     Active Substance: HEPARIN SODIUM
     Indication: PERIPHERAL ARTERY OCCLUSION
     Dosage: UNK
     Route: 041
     Dates: start: 20201031, end: 20201117
  3. LOVENOX [Suspect]
     Active Substance: ENOXAPARIN SODIUM
     Indication: PERIPHERAL ARTERY OCCLUSION
     Dosage: 16000 IU, QD
     Route: 058
     Dates: start: 20201108, end: 20201111

REACTIONS (3)
  - Peripheral artery thrombosis [Recovering/Resolving]
  - Heparin-induced thrombocytopenia [Recovered/Resolved]
  - Condition aggravated [Recovering/Resolving]

NARRATIVE: CASE EVENT DATE: 20201111
